FAERS Safety Report 4407105-X (Version None)
Quarter: 2004Q3

REPORT INFORMATION
  Report Type: 
  Country: None (occurrence: None)
  Receive Date: 20040721
  Receipt Date: 20040707
  Transmission Date: 20050211
  Serious: Yes (Other)
  Sender: FDA-Public Use
  Company Number: USA-2004-0013225

PATIENT
  Age: 22 Year
  Sex: Male
  Weight: 59 kg

DRUGS (4)
  1. OXYCONTIN [Suspect]
     Indication: PAIN
     Dosage: 40 MG, BID
     Dates: start: 20031117, end: 20040225
  2. XANAX [Concomitant]
  3. GABITRIL [Concomitant]
  4. TRIAVIL (AMITRIPTYLINE HYDROCHLORIDE, PERPHENAZINE) [Concomitant]

REACTIONS (1)
  - GRAND MAL CONVULSION [None]
